FAERS Safety Report 13720369 (Version 1)
Quarter: 2017Q3

REPORT INFORMATION
  Report Type: Spontaneous
  Country: US (occurrence: US)
  Receive Date: 20170705
  Receipt Date: 20170705
  Transmission Date: 20171127
  Serious: Yes (Hospitalization)
  Sender: FDA-Public Use
  Company Number: None

PATIENT
  Age: 68 Year
  Sex: Male
  Weight: 87.18 kg

DRUGS (1)
  1. PEMBROLIZUMAB. [Suspect]
     Active Substance: PEMBROLIZUMAB
     Indication: BLADDER CANCER
     Dosage: 200 MG OTHER IV
     Route: 042
     Dates: start: 20170608, end: 20170612

REACTIONS (2)
  - Cold sweat [None]
  - Pancreatitis [None]

NARRATIVE: CASE EVENT DATE: 20170612
